FAERS Safety Report 6473749-7 (Version None)
Quarter: 2009Q4

REPORT INFORMATION
  Report Type: 
  Country: None (occurrence: None)
  Receive Date: 20091204
  Receipt Date: 20091126
  Transmission Date: 20100525
  Serious: Yes (Other)
  Sender: FDA-Public Use
  Company Number: HR-JNJFOC-20091200174

PATIENT
  Sex: Female

DRUGS (4)
  1. RISPOLEPT [Suspect]
     Route: 065
  2. RISPOLEPT [Suspect]
     Indication: ACUTE PSYCHOSIS
     Route: 065
  3. LEPONEX [Suspect]
     Indication: DRUG USE FOR UNKNOWN INDICATION
     Dosage: HALF OF THE TABLET IN THE EVENING.
     Route: 065
  4. NORMABEL [Concomitant]
     Route: 065

REACTIONS (9)
  - ASTHENIA [None]
  - DYSARTHRIA [None]
  - DYSPHAGIA [None]
  - HALLUCINATION [None]
  - OROMANDIBULAR DYSTONIA [None]
  - PARKINSONISM [None]
  - SLUGGISHNESS [None]
  - STIFF-MAN SYNDROME [None]
  - TREMOR [None]
